FAERS Safety Report 6210641-7 (Version None)
Quarter: 2009Q2

REPORT INFORMATION
  Report Type: 
  Country: None (occurrence: None)
  Receive Date: 20090528
  Receipt Date: 20090515
  Transmission Date: 20091009
  Serious: Yes (Hospitalization)
  Sender: FDA-Public Use
  Company Number: 235477K09USA

PATIENT
  Age: 56 Year
  Sex: Female

DRUGS (13)
  1. REBIF [Suspect]
     Indication: MULTIPLE SCLEROSIS
     Dosage: 44 MCG, 3 IN 1 WEEKS, SUBCUTANEOUS
     Route: 058
     Dates: start: 20020101, end: 20080101
  2. CYMBALTA [Suspect]
     Indication: DEPRESSION
     Dates: end: 20050101
  3. CYMBALTA [Suspect]
     Indication: NEUROPATHY PERIPHERAL
     Dates: end: 20050101
  4. UNSPECIFIED MEDICATION       (ALL OTHER THERAPEUTIC PRODUCTS) [Concomitant]
  5. ELAVIL [Concomitant]
  6. BACLOFEN [Concomitant]
  7. LAMICTAL [Concomitant]
  8. TEGRETOL [Concomitant]
  9. TEMAZEPAM [Concomitant]
  10. FIORINAL (FIORINAL /00090401/) [Concomitant]
  11. PRILOSEC [Concomitant]
  12. OXYBUTYNIN (OXYBUTYNIN /00538901/) [Concomitant]
  13. INTRAVENOUS IMMUNE GLOBULIN (ALL OTHER THERAPEUTIC PRODUCTS) [Concomitant]

REACTIONS (4)
  - CONVULSION [None]
  - FATIGUE [None]
  - HYPERTENSION [None]
  - INFLUENZA LIKE ILLNESS [None]
